FAERS Safety Report 10516950 (Version 1)
Quarter: 2014Q4

REPORT INFORMATION
  Report Type: Spontaneous
  Country: US (occurrence: US)
  Receive Date: 20141014
  Receipt Date: 20141014
  Transmission Date: 20150528
  Serious: No
  Sender: FDA-Public Use
  Company Number: US-TEVA-515481USA

PATIENT
  Age: 29 Year
  Sex: Female
  Weight: 92.62 kg

DRUGS (1)
  1. PARAGARD T380A [Suspect]
     Active Substance: COPPER
     Indication: CONTRACEPTION
     Route: 015
     Dates: start: 20140529

REACTIONS (4)
  - Device expulsion [Not Recovered/Not Resolved]
  - Menorrhagia [Unknown]
  - Metrorrhagia [Unknown]
  - Dysmenorrhoea [Unknown]

NARRATIVE: CASE EVENT DATE: 20141006
